FAERS Safety Report 6058111-3 (Version None)
Quarter: 2009Q1

REPORT INFORMATION
  Report Type: 
  Country: None (occurrence: None)
  Receive Date: 20090130
  Receipt Date: 20090116
  Transmission Date: 20090719
  Serious: Yes (Death)
  Sender: FDA-Public Use
  Company Number: US-RANBAXY-2009RR-21338

PATIENT
  Age: 31 Year
  Sex: Female

DRUGS (4)
  1. FLUOXETINE HCL [Suspect]
     Indication: DRUG ADMINISTRATION ERROR
     Route: 048
  2. DULOXETINE HYDROCHLORIDE [Suspect]
     Indication: DRUG ADMINISTRATION ERROR
     Route: 048
  3. BENZODIAZEPINE [Suspect]
     Indication: DRUG ADMINISTRATION ERROR
     Route: 048
  4. CIPROFLOXACIN [Suspect]
     Indication: DRUG ADMINISTRATION ERROR
     Route: 048

REACTIONS (1)
  - DRUG ADMINISTRATION ERROR [None]
